FAERS Safety Report 23310370 (Version 2)
Quarter: 2024Q2

REPORT INFORMATION
  Report Type: Spontaneous
  Country: FR (occurrence: FR)
  Receive Date: 20231218
  Receipt Date: 20240503
  Transmission Date: 20240715
  Serious: Yes (Life-Threatening)
  Sender: FDA-Public Use
  Company Number: None

PATIENT
  Age: 86 Year
  Sex: Male
  Weight: 72 kg

DRUGS (3)
  1. EPINEPHRINE [Suspect]
     Active Substance: EPINEPHRINE
     Indication: Joint injection
     Dosage: UNK
     Route: 014
     Dates: start: 20231002, end: 20231002
  2. ROPIVACAINE HYDROCHLORIDE [Suspect]
     Active Substance: ROPIVACAINE HYDROCHLORIDE
     Indication: Joint injection
     Dosage: UNK
     Route: 014
     Dates: start: 20231002, end: 20231002
  3. KETOPROFEN [Suspect]
     Active Substance: KETOPROFEN
     Indication: Joint injection
     Dosage: UNK
     Route: 014
     Dates: start: 20231002, end: 20231002

REACTIONS (3)
  - Cardiac arrest [Recovered/Resolved]
  - Ventricular tachycardia [Recovered/Resolved]
  - Off label use [Recovered/Resolved]

NARRATIVE: CASE EVENT DATE: 20231002
